FAERS Safety Report 22235690 (Version 1)
Quarter: 2023Q2

REPORT INFORMATION
  Report Type: Report from Study
  Country: RU (occurrence: RU)
  Receive Date: 20230420
  Receipt Date: 20230420
  Transmission Date: 20230722
  Serious: Yes (Other)
  Sender: FDA-Public Use
  Company Number: RU-SUN PHARMACEUTICAL INDUSTRIES LTD-2023R1-385945

PATIENT
  Age: 43 Year
  Sex: Female

DRUGS (3)
  1. TRIFLUOPERAZINE [Suspect]
     Active Substance: TRIFLUOPERAZINE HYDROCHLORIDE
     Indication: Tourette^s disorder
     Dosage: 2.5MG/DAY
     Route: 065
  2. CLONAZEPAM [Suspect]
     Active Substance: CLONAZEPAM
     Indication: Tourette^s disorder
     Dosage: 1MG/DAY
     Route: 065
  3. CLOMIPRAMINE [Suspect]
     Active Substance: CLOMIPRAMINE
     Indication: Tourette^s disorder
     Dosage: 25MG/DAY
     Route: 065

REACTIONS (3)
  - Amenorrhoea [Unknown]
  - Condition aggravated [Unknown]
  - Drug ineffective [Unknown]
